FAERS Safety Report 7090243-3 (Version None)
Quarter: 2010Q4

REPORT INFORMATION
  Report Type: 
  Country: None (occurrence: None)
  Receive Date: 20101109
  Receipt Date: 20101029
  Transmission Date: 20110411
  Serious: Yes (Other)
  Sender: FDA-Public Use
  Company Number: CA-JNJFOC-20101003970

PATIENT
  Sex: Female
  Weight: 84.2 kg

DRUGS (16)
  1. REMICADE [Suspect]
     Indication: RHEUMATOID ARTHRITIS
     Route: 042
  2. REMICADE [Suspect]
     Route: 042
  3. METHOTREXATE [Concomitant]
  4. CELEBREX [Concomitant]
  5. PREMARIN [Concomitant]
  6. DIAMICRON [Concomitant]
  7. ADALAT [Concomitant]
  8. PARIET [Concomitant]
  9. ACTONEL [Concomitant]
  10. CYTOMEL [Concomitant]
  11. ASPIRIN [Concomitant]
  12. METFORMIN HCL [Concomitant]
  13. GOLD [Concomitant]
  14. SPIRONOLACTONE [Concomitant]
  15. GABAPENTIN [Concomitant]
  16. TRIIODOTHYRONINE [Concomitant]

REACTIONS (2)
  - POSTOPERATIVE WOUND INFECTION [None]
  - SKIN IRRITATION [None]
